FAERS Safety Report 18606719 (Version 3)
Quarter: 2021Q1

REPORT INFORMATION
  Report Type: Report from Study
  Country: JP (occurrence: JP)
  Receive Date: 20201212
  Receipt Date: 20210208
  Transmission Date: 20210419
  Serious: No
  Sender: FDA-Public Use
  Company Number: JP-ROCHE-2727158

PATIENT
  Age: 76 Year
  Sex: Female
  Weight: 38.4 kg

DRUGS (21)
  1. EMICIZUMAB. [Suspect]
     Active Substance: EMICIZUMAB
     Route: 058
     Dates: start: 20201124, end: 20201201
  2. ALPRAZOLAM. [Concomitant]
     Active Substance: ALPRAZOLAM
     Indication: INSOMNIA
     Route: 048
  3. AMLODIPINE [Concomitant]
     Active Substance: AMLODIPINE BESYLATE
     Indication: HYPERTENSION
     Dosage: AFTER THE BREAKFAST
     Route: 048
     Dates: start: 20201112
  4. ACELIO [Concomitant]
     Active Substance: ACETAMINOPHEN
     Indication: PAIN IN EXTREMITY
     Dosage: 0.6 B AND SINGLE USE
     Route: 042
     Dates: start: 20201118
  5. EMICIZUMAB. [Suspect]
     Active Substance: EMICIZUMAB
     Indication: ACQUIRED HAEMOPHILIA
     Dosage: DATE OF MOST RECENT DOSE (0.38 MG) PRIOR TO SAE: 01/DEC/2020
     Route: 058
     Dates: start: 20201117
  6. NEXIUM [Concomitant]
     Active Substance: ESOMEPRAZOLE MAGNESIUM
     Indication: GASTRITIS PROPHYLAXIS
     Route: 048
  7. NEUROTROPIN (JAPAN) [Concomitant]
     Indication: PAIN IN EXTREMITY
     Route: 048
  8. MAGNESIUM OXIDE. [Concomitant]
     Active Substance: MAGNESIUM OXIDE
     Indication: CONSTIPATION
     Dosage: AFTER THE SUPPER DAYTIME IN THE MORNING
     Route: 048
  9. BUPRENORPHINE. [Concomitant]
     Active Substance: BUPRENORPHINE
     Indication: PAIN IN EXTREMITY
     Dosage: 0.5A/TIME AND SINGLE USE
     Route: 042
     Dates: start: 20201112
  10. CINAL (JAPAN) [Concomitant]
     Indication: HAEMORRHAGE
     Dosage: AFTER THE MEAL IN THE MORNING AND EVENING
     Route: 048
     Dates: start: 20201114
  11. SENNOSIDE [Concomitant]
     Active Substance: SENNOSIDES
     Indication: CONSTIPATION
     Dosage: BEFORE RETIRING
     Route: 048
     Dates: start: 20201114
  12. CARERAM [Concomitant]
     Active Substance: IGURATIMOD
     Indication: RHEUMATOID ARTHRITIS
     Route: 048
  13. TRAMCET [Concomitant]
     Active Substance: ACETAMINOPHEN\TRAMADOL
     Indication: PAIN IN EXTREMITY
     Route: 048
     Dates: start: 20201112
  14. CARBAZOCHROME SODIUM SULFONATE [Concomitant]
     Active Substance: CARBAZOCHROME SODIUM SULFONATE
     Indication: HAEMORRHAGE
     Dosage: AFTER THE SUPPER DAYTIME IN THE MORNING
     Route: 048
     Dates: start: 20201116
  15. MIYA?BM [Concomitant]
     Active Substance: CLOSTRIDIUM BUTYRICUM SPORES STRAIN M-55
     Indication: CONSTIPATION
     Dosage: AFTER THE SUPPER DAYTIME IN THE MORNING
     Route: 048
     Dates: start: 20201121
  16. PICOSULFATE NA [Concomitant]
     Active Substance: SODIUM PICOSULFATE
     Indication: CONSTIPATION
     Dosage: BEFORE RETIRING
     Route: 048
     Dates: start: 20201124
  17. PREDNISOLONE. [Suspect]
     Active Substance: PREDNISOLONE
     Indication: ACQUIRED HAEMOPHILIA
     Dosage: AFTER THE BREAKFAST
     Route: 048
     Dates: start: 20201105
  18. EMICIZUMAB. [Suspect]
     Active Substance: EMICIZUMAB
     Route: 058
     Dates: start: 20201118
  19. CELECOXIB. [Concomitant]
     Active Substance: CELECOXIB
     Indication: PAIN IN EXTREMITY
     Route: 048
  20. TEPRENONE [Concomitant]
     Active Substance: TEPRENONE
     Indication: GASTRITIS PROPHYLAXIS
     Route: 048
  21. BELSOMRA [Concomitant]
     Active Substance: SUVOREXANT
     Indication: INSOMNIA
     Route: 048

REACTIONS (1)
  - Deep vein thrombosis [Recovered/Resolved]

NARRATIVE: CASE EVENT DATE: 20201202
